FAERS Safety Report 4714381-2 (Version None)
Quarter: 2005Q3

REPORT INFORMATION
  Report Type: 
  Country: None (occurrence: None)
  Receive Date: 20050714
  Receipt Date: 20020130
  Transmission Date: 20060218
  Serious: Yes (Hospitalization, Other)
  Sender: FDA-Public Use
  Company Number: US-GLAXOSMITHKLINE-A0357837A

PATIENT
  Age: 18 Year
  Sex: Female
  Weight: 96.8 kg

DRUGS (3)
  1. PAXIL [Suspect]
     Route: 065
     Dates: start: 20000301, end: 20000517
  2. ST JOHN'S WORT [Concomitant]
  3. IBUPROFEN [Concomitant]

REACTIONS (46)
  - ABASIA [None]
  - ABDOMINAL DISCOMFORT [None]
  - ABORTION SPONTANEOUS [None]
  - AGGRESSION [None]
  - AGITATION [None]
  - ANGER [None]
  - ANOREXIA [None]
  - ANXIETY [None]
  - APATHY [None]
  - COGNITIVE DISORDER [None]
  - CONFUSIONAL STATE [None]
  - CONVERSION DISORDER [None]
  - CONVULSION [None]
  - COUGH [None]
  - DEPENDENCE [None]
  - DISTURBANCE IN ATTENTION [None]
  - DIZZINESS [None]
  - DRUG DEPENDENCE [None]
  - DRUG WITHDRAWAL SYNDROME [None]
  - DYSPNOEA [None]
  - EXTRAPYRAMIDAL DISORDER [None]
  - FATIGUE [None]
  - FEELING ABNORMAL [None]
  - FORMICATION [None]
  - HEART RATE INCREASED [None]
  - HYPERHIDROSIS [None]
  - ILL-DEFINED DISORDER [None]
  - INFLUENZA [None]
  - INSOMNIA [None]
  - IRRITABILITY [None]
  - LETHARGY [None]
  - MOTOR DYSFUNCTION [None]
  - MUSCLE SPASMS [None]
  - MUSCLE SPASTICITY [None]
  - MUSCULOSKELETAL STIFFNESS [None]
  - NAUSEA [None]
  - NIGHTMARE [None]
  - PARAESTHESIA [None]
  - PYREXIA [None]
  - SLUGGISHNESS [None]
  - SOMNOLENCE [None]
  - SUICIDAL IDEATION [None]
  - SWELLING [None]
  - THINKING ABNORMAL [None]
  - TREMOR [None]
  - VOMITING [None]
